FAERS Safety Report 8964563 (Version 3)
Quarter: 2013Q1

REPORT INFORMATION
  Report Type: Spontaneous
  Country: BR (occurrence: BR)
  Receive Date: 20121213
  Receipt Date: 20130301
  Transmission Date: 20140127
  Serious: Yes (Hospitalization, Other)
  Sender: FDA-Public Use
  Company Number: BR-PFIZER INC-2012304974

PATIENT
  Age: 60 Year
  Sex: Female
  Weight: 55 kg

DRUGS (18)
  1. FRONTAL XR [Suspect]
     Indication: MEMORY IMPAIRMENT
     Dosage: 0.5 MG, 1X/DAY
     Route: 065
     Dates: start: 201108
  2. FRONTAL XR [Suspect]
     Indication: MEMORY IMPAIRMENT
  3. FRONTAL XR [Suspect]
     Indication: SLEEP DISORDER
  4. FLUOXETINE HCL [Suspect]
     Dosage: UNK
     Route: 065
  5. CAPTOPRIL [Suspect]
     Dosage: UNK
     Route: 065
  6. DIENPAX [Suspect]
     Dosage: UNK
     Route: 065
  7. ATENOLOL [Concomitant]
     Indication: BLOOD PRESSURE INCREASED
     Dosage: UNK
  8. LOSARTAN [Concomitant]
     Indication: BLOOD PRESSURE INCREASED
     Dosage: UNK
  9. LOSARTAN [Concomitant]
     Indication: DIURETIC THERAPY
  10. SYNTHROID [Concomitant]
     Indication: THYROID NEOPLASM
     Dosage: 50MCG ALTERNATING WITH 75MCG
  11. SYNTHROID [Concomitant]
     Indication: HORMONE THERAPY
  12. SOMALGIN [Concomitant]
     Indication: CEREBROVASCULAR DISORDER
     Dosage: 100 MG, 1X/DAY
     Dates: start: 201108
  13. VINPOCETINE [Concomitant]
     Indication: CEREBROVASCULAR DISORDER
     Dosage: 50 MG, 2X/DAY
     Dates: start: 201108
  14. VIVACOR (CARVEDILOL) [Concomitant]
     Dosage: ALTERNATE DAYS
  15. LIPITOR [Concomitant]
     Dosage: 40 MG, ALTERNATE DAY
  16. ZETIA [Concomitant]
     Indication: HYPERTRIGLYCERIDAEMIA
     Dosage: UNK
     Dates: start: 201108
  17. DAFORIN [Concomitant]
     Indication: ANTIDEPRESSANT THERAPY
     Dosage: UNK
     Dates: start: 201206
  18. ROSUVASTATIN [Concomitant]
     Dosage: UNK

REACTIONS (11)
  - Hypertensive crisis [Unknown]
  - Ischaemic stroke [Recovering/Resolving]
  - Back pain [Unknown]
  - Ischaemia [Recovering/Resolving]
  - Memory impairment [Recovering/Resolving]
  - Cardiovascular disorder [Unknown]
  - Blood triglycerides increased [Not Recovered/Not Resolved]
  - Benign neoplasm of thyroid gland [Unknown]
  - Drug ineffective [Unknown]
  - Off label use [Not Recovered/Not Resolved]
  - Dyslipidaemia [Unknown]
